FAERS Safety Report 24078603 (Version 1)
Quarter: 2024Q3

REPORT INFORMATION
  Report Type: Spontaneous
  Country: FR (occurrence: FR)
  Receive Date: 20240711
  Receipt Date: 20240711
  Transmission Date: 20241017
  Serious: Yes (Hospitalization, Other)
  Sender: ACCORD
  Company Number: None

PATIENT
  Age: 72 Year
  Sex: Female
  Weight: 55 kg

DRUGS (14)
  1. CARBOPLATIN [Suspect]
     Active Substance: CARBOPLATIN
     Indication: Endometrial cancer
     Dates: start: 20240109, end: 20240109
  2. PACLITAXEL [Suspect]
     Active Substance: PACLITAXEL
     Indication: Endometrial cancer
     Dates: start: 20240109, end: 20240109
  3. DOSTARLIMAB [Suspect]
     Active Substance: DOSTARLIMAB
     Indication: Endometrial cancer
     Dates: start: 20240227, end: 20240227
  4. CARBOPLATIN [Suspect]
     Active Substance: CARBOPLATIN
     Indication: Endometrial cancer
     Dates: start: 20231219, end: 20231219
  5. CARBOPLATIN [Suspect]
     Active Substance: CARBOPLATIN
     Indication: Endometrial cancer
     Dates: start: 20240227, end: 20240227
  6. CARBOPLATIN [Suspect]
     Active Substance: CARBOPLATIN
     Indication: Endometrial cancer
     Dates: start: 20240206, end: 20240206
  7. CARBOPLATIN [Suspect]
     Active Substance: CARBOPLATIN
     Indication: Endometrial cancer
     Dates: start: 20240319, end: 20240319
  8. PACLITAXEL [Suspect]
     Active Substance: PACLITAXEL
     Indication: Endometrial cancer
     Dates: start: 20240206, end: 20240206
  9. PACLITAXEL [Suspect]
     Active Substance: PACLITAXEL
     Indication: Endometrial cancer
     Dates: start: 20240319, end: 20240319
  10. PACLITAXEL [Suspect]
     Active Substance: PACLITAXEL
     Indication: Endometrial cancer
     Dates: start: 20240227, end: 20240227
  11. PACLITAXEL [Suspect]
     Active Substance: PACLITAXEL
     Indication: Endometrial cancer
     Dates: start: 20231219, end: 20231219
  12. DOSTARLIMAB [Suspect]
     Active Substance: DOSTARLIMAB
     Indication: Endometrial cancer
     Dates: start: 20240109, end: 20240109
  13. DOSTARLIMAB [Suspect]
     Active Substance: DOSTARLIMAB
     Indication: Endometrial cancer
     Dates: start: 20240514
  14. DOSTARLIMAB [Suspect]
     Active Substance: DOSTARLIMAB
     Indication: Endometrial cancer
     Dates: start: 20240206, end: 20240206

REACTIONS (10)
  - Starvation [Recovering/Resolving]
  - Pulmonary embolism [Recovered/Resolved]
  - Immune-mediated hyperthyroidism [Recovering/Resolving]
  - Bronchitis [Recovered/Resolved]
  - Diabetic metabolic decompensation [Recovered/Resolved]
  - Pulmonary sepsis [Recovered/Resolved]
  - Anaemia [Recovering/Resolving]
  - Neutropenia [Recovered/Resolved]
  - Neuropathy peripheral [Recovering/Resolving]
  - Diarrhoea [Recovered/Resolved]

NARRATIVE: CASE EVENT DATE: 20240208
